FAERS Safety Report 7591189-4 (Version None)
Quarter: 2011Q3

REPORT INFORMATION
  Report Type: 
  Country: None (occurrence: None)
  Receive Date: 20110706
  Receipt Date: 20110630
  Transmission Date: 20111222
  Serious: Yes (Death, Life-Threatening, Hospitalization, Other)
  Sender: FDA-Public Use
  Company Number: FR-BRISTOL-MYERS SQUIBB COMPANY-15724610

PATIENT
  Age: 65 Year
  Sex: Male

DRUGS (5)
  1. IPILIMUMAB [Suspect]
     Indication: MALIGNANT MELANOMA
     Dosage: NO OF COURSE=3
     Route: 042
     Dates: start: 20110316, end: 20110427
  2. OMEPRAZOLE [Concomitant]
     Dates: start: 20110503
  3. ENALAPRIL MALEATE [Concomitant]
     Dates: start: 20040101
  4. BLINDED: PLACEBO [Suspect]
     Indication: MALIGNANT MELANOMA
     Route: 042
     Dates: start: 20110316, end: 20110427
  5. VOGALENE [Concomitant]
     Dates: start: 20110427

REACTIONS (10)
  - ANAEMIA [None]
  - CARDIOMYOPATHY [None]
  - SEPSIS [None]
  - ILEUS [None]
  - THROMBOCYTOPENIA [None]
  - MULTI-ORGAN FAILURE [None]
  - GUILLAIN-BARRE SYNDROME [None]
  - CARDIOGENIC SHOCK [None]
  - LUNG INFECTION [None]
  - COLITIS [None]
